FAERS Safety Report 4384380-1 (Version None)
Quarter: 2004Q2

REPORT INFORMATION
  Report Type: 
  Country: None (occurrence: None)
  Receive Date: 20040621
  Receipt Date: 20040607
  Transmission Date: 20050107
  Serious: Yes (Disabling)
  Sender: FDA-Public Use
  Company Number: 2004218087FR

PATIENT
  Age: 17 Year
  Sex: Male
  Weight: 63 kg

DRUGS (11)
  1. DOXORUBICIN HCL [Suspect]
     Indication: HODGKIN'S DISEASE
     Dosage: SEE IMAGE
     Route: 042
     Dates: start: 20020402, end: 20020419
  2. DOXORUBICIN HCL [Suspect]
     Indication: HODGKIN'S DISEASE
     Dosage: SEE IMAGE
     Route: 042
     Dates: start: 20020514, end: 20020531
  3. GAMMAGLOBULIN (IMMUNOGLOBULIN HUMAN NORMAL, IMMUNOGLOBULIN HUMAN NORMA [Suspect]
     Indication: IDIOPATHIC THROMBOCYTOPENIC PURPURA
     Dosage: SEE IMAGE
     Route: 042
     Dates: start: 20021105, end: 20021105
  4. GAMMAGLOBULIN (IMMUNOGLOBULIN HUMAN NORMAL, IMMUNOGLOBULIN HUMAN NORMA [Suspect]
     Indication: IDIOPATHIC THROMBOCYTOPENIC PURPURA
     Dosage: SEE IMAGE
     Route: 042
     Dates: start: 20021106, end: 20021106
  5. DELTASONE [Suspect]
     Indication: HODGKIN'S DISEASE
     Dosage: SEE IMAGE
     Route: 048
     Dates: start: 20020402, end: 20020531
  6. DELTASONE [Suspect]
     Indication: HODGKIN'S DISEASE
     Dosage: SEE IMAGE
     Route: 048
     Dates: start: 20020628, end: 20021213
  7. CYCLOPHOSPHAMIDE [Suspect]
     Indication: HODGKIN'S DISEASE
     Dosage: 500 MG/M2, D1 TO 18, 3 TO 6 IV
     Route: 042
     Dates: start: 20020628, end: 20021213
  8. VINCRISTINE [Suspect]
     Indication: HODGKIN'S DISEASE
     Dosage: SEE IMAGE
     Route: 042
     Dates: start: 20020402, end: 20020531
  9. VINCRISTINE [Suspect]
     Indication: HODGKIN'S DISEASE
     Dosage: SEE IMAGE
     Route: 042
     Dates: start: 20020628, end: 20021213
  10. NATULAN (PROCARBAZINE HYDROCHLORIDE) [Suspect]
     Indication: HODGKIN'S DISEASE
     Dosage: SEE IMAGE
     Route: 048
     Dates: start: 20020402, end: 20020531
  11. NATULAN (PROCARBAZINE HYDROCHLORIDE) [Suspect]
     Indication: HODGKIN'S DISEASE
     Dosage: SEE IMAGE
     Route: 048
     Dates: start: 20020628, end: 20021213

REACTIONS (2)
  - DEAFNESS UNILATERAL [None]
  - IDIOPATHIC THROMBOCYTOPENIC PURPURA [None]
